FAERS Safety Report 8771459 (Version 1)
Quarter: 2012Q4

REPORT INFORMATION
  Report Type: 
  Country: US (occurrence: US)
  Receive Date: 20120905
  Receipt Date: 20120905
  Transmission Date: 20130627
  Serious: Yes (Hospitalization)
  Sender: FDA-Public Use
  Company Number: CHPA2012US019040

PATIENT
  Age: 52 Year
  Sex: Female

DRUGS (3)
  1. NICOTINE TRANSDERMAL SYSTEM [Suspect]
     Indication: SMOKING CESSATION THERAPY
     Dosage: 21 mg, Unk
     Route: 062
  2. EFEXOR                                  /USA/ [Concomitant]
     Dosage: Unk, Unk
  3. LIPITOR                                 /NET/ [Concomitant]
     Dosage: Unk, Unk

REACTIONS (3)
  - Myocardial infarction [Recovered/Resolved]
  - Muscle injury [Recovered/Resolved]
  - Stress cardiomyopathy [Recovered/Resolved]
